FAERS Safety Report 5871560-9 (Version None)
Quarter: 2008Q3

REPORT INFORMATION
  Report Type: 
  Country: None (occurrence: None)
  Receive Date: 20080905
  Receipt Date: 20080428
  Transmission Date: 20090109
  Serious: No
  Sender: FDA-Public Use
  Company Number: A0725090A

PATIENT
  Age: 51 Year
  Sex: Male

DRUGS (2)
  1. REQUIP [Suspect]
     Indication: RESTLESS LEGS SYNDROME
     Dosage: 1MG PER DAY
     Route: 048
     Dates: start: 20070901
  2. EXELON [Concomitant]
     Route: 061

REACTIONS (2)
  - MUSCLE TIGHTNESS [None]
  - MYALGIA [None]
